FAERS Safety Report 4581637-6 (Version None)
Quarter: 2005Q1

REPORT INFORMATION
  Report Type: 
  Country: None (occurrence: None)
  Receive Date: 20050214
  Receipt Date: 20041207
  Transmission Date: 20050727
  Serious: No
  Sender: FDA-Public Use
  Company Number: US-GLAXOSMITHKLINE-A0536571A

PATIENT
  Age: 54 Year
  Sex: Female

DRUGS (13)
  1. LAMICTAL [Suspect]
     Indication: BIPOLAR DISORDER
     Dosage: 100MG PER DAY
     Route: 048
  2. PAXIL [Concomitant]
  3. NEPHRO-VITE [Concomitant]
  4. PRILOSEC [Concomitant]
  5. LIPITOR [Concomitant]
  6. NORVASC [Concomitant]
  7. LISINOPRIL [Concomitant]
  8. TRAZODONE [Concomitant]
  9. LORATADINE [Concomitant]
  10. METOCLOPRAMIDE [Concomitant]
  11. INSULIN [Concomitant]
  12. DOCUSATE SODIUM [Concomitant]
  13. HUMALOG [Concomitant]

REACTIONS (1)
  - COORDINATION ABNORMAL [None]
